FAERS Safety Report 9847258 (Version 1)
Quarter: 2014Q1

REPORT INFORMATION
  Report Type: Spontaneous
  Country: US (occurrence: US)
  Receive Date: 20140127
  Receipt Date: 20140127
  Transmission Date: 20141002
  Serious: Yes (Hospitalization)
  Sender: FDA-Public Use
  Company Number: US-DYAX CORP.-2013DX000124

PATIENT
  Age: 53 Year
  Sex: Female
  Weight: 59.47 kg

DRUGS (19)
  1. KALBITOR [Suspect]
     Indication: HEREDITARY ANGIOEDEMA
     Route: 058
     Dates: start: 20130619, end: 20130619
  2. KALBITOR [Suspect]
     Route: 058
     Dates: start: 20130618, end: 20130618
  3. KALBITOR [Suspect]
     Route: 058
     Dates: start: 201212
  4. ATENOLOL [Concomitant]
     Indication: PRODUCT USED FOR UNKNOWN INDICATION
     Route: 048
  5. RIBAVIRIN [Concomitant]
     Indication: LIVER DISORDER
     Route: 048
  6. PEGASYS [Concomitant]
     Indication: LIVER DISORDER
     Route: 058
  7. BENADRYL [Concomitant]
     Indication: HEREDITARY ANGIOEDEMA
     Route: 058
  8. HYDROCHLOROTHIAZIDE [Concomitant]
     Indication: HYPERTENSION
     Route: 048
  9. OXYCONTIN [Concomitant]
     Indication: PAIN
     Route: 048
  10. SEROQUEL [Concomitant]
     Indication: HALLUCINATION
     Route: 048
  11. VITAMIN B-12 [Concomitant]
     Indication: PRODUCT USED FOR UNKNOWN INDICATION
     Route: 060
  12. IRON [Concomitant]
     Indication: PRODUCT USED FOR UNKNOWN INDICATION
     Route: 048
  13. ZYRTEC [Concomitant]
     Indication: PRODUCT USED FOR UNKNOWN INDICATION
     Route: 048
  14. EPIPEN [Concomitant]
     Indication: ALLERGY TO ARTHROPOD BITE
  15. MELOXICAM [Concomitant]
     Indication: ARTHRITIS
     Route: 048
  16. FOLIC ACID [Concomitant]
     Indication: PRODUCT USED FOR UNKNOWN INDICATION
     Route: 048
  17. XANAX [Concomitant]
     Indication: PRODUCT USED FOR UNKNOWN INDICATION
     Route: 048
  18. METAXALONE [Concomitant]
     Indication: PAIN
     Route: 048
  19. ASPIRIN [Concomitant]
     Indication: CARDIAC DISORDER
     Route: 048

REACTIONS (3)
  - Hereditary angioedema [Unknown]
  - Sleep disorder [Unknown]
  - Dyspepsia [Unknown]
